FAERS Safety Report 7530311-2 (Version None)
Quarter: 2011Q2

REPORT INFORMATION
  Report Type: 
  Country: None (occurrence: None)
  Receive Date: 20110607
  Receipt Date: 20110531
  Transmission Date: 20111010
  Serious: Yes (Other)
  Sender: FDA-Public Use
  Company Number: PHHY2011GB46833

PATIENT
  Age: 84 Year
  Sex: Female

DRUGS (1)
  1. DIPHENHYDRAMINE HCL [Suspect]
     Indication: HEADACHE
     Dosage: UNK
     Route: 048

REACTIONS (9)
  - DRUG DEPENDENCE [None]
  - WITHDRAWAL SYNDROME [None]
  - SOMNOLENCE [None]
  - VOMITING [None]
  - DIARRHOEA [None]
  - CONFUSIONAL STATE [None]
  - LETHARGY [None]
  - ANXIETY [None]
  - HEADACHE [None]
